FAERS Safety Report 5400408-1 (Version None)
Quarter: 2007Q3

REPORT INFORMATION
  Report Type: 
  Country: None (occurrence: None)
  Receive Date: 20070730
  Receipt Date: 20070725
  Transmission Date: 20080115
  Serious: Yes (Hospitalization)
  Sender: FDA-Public Use
  Company Number: B0480241A

PATIENT
  Sex: Female
  Weight: 3.9 kg

DRUGS (2)
  1. RETROVIR [Suspect]
     Indication: ANTIVIRAL PROPHYLAXIS
     Route: 048
     Dates: start: 20070530, end: 20070531
  2. ZIDOVUDINE [Concomitant]
     Dates: start: 20070530, end: 20070530

REACTIONS (4)
  - ACCIDENTAL OVERDOSE [None]
  - ANAEMIA [None]
  - DRUG ADMINISTRATION ERROR [None]
  - DRUG EXPOSURE DURING PREGNANCY [None]
